FAERS Safety Report 23149386 (Version 1)
Quarter: 2023Q4

REPORT INFORMATION
  Report Type: Spontaneous
  Country: ES (occurrence: ES)
  Receive Date: 20231106
  Receipt Date: 20231106
  Transmission Date: 20240109
  Serious: Yes (Other)
  Sender: FDA-Public Use
  Company Number: None

PATIENT
  Age: 81 Year
  Sex: Male
  Weight: 87 kg

DRUGS (1)
  1. AMLODIPINE\OLMESARTAN [Suspect]
     Active Substance: AMLODIPINE\OLMESARTAN
     Indication: Myocardial ischaemia
     Dosage: 1 U.D.ORAL  , OLMESARTAN/AMLODIPINO TEVA , 20 MG/5 MG EFG  , 28 TABLETS
     Route: 048
     Dates: start: 20121211

REACTIONS (2)
  - Dyspnoea [Recovered/Resolved]
  - Dry mouth [Recovered/Resolved]

NARRATIVE: CASE EVENT DATE: 20230918
